FAERS Safety Report 12177236 (Version 1)
Quarter: 2016Q1

REPORT INFORMATION
  Report Type: Spontaneous
  Country: US (occurrence: US)
  Receive Date: 20160314
  Receipt Date: 20160314
  Transmission Date: 20160526
  Serious: No
  Sender: FDA-Public Use
  Company Number: US-TARO-2015TAR01114

PATIENT
  Age: 75 Year
  Sex: Female

DRUGS (1)
  1. DICLOFENAC 1.5% LIQUID [Suspect]
     Active Substance: DICLOFENAC

REACTIONS (3)
  - Insomnia [Unknown]
  - Hot flush [Unknown]
  - Drug ineffective for unapproved indication [Unknown]
